FAERS Safety Report 10100401 (Version 1)
Quarter: 2014Q2

REPORT INFORMATION
  Report Type: Spontaneous
  Country: US (occurrence: US)
  Receive Date: 20140423
  Receipt Date: 20140423
  Transmission Date: 20141212
  Serious: No
  Sender: FDA-Public Use
  Company Number: US-MYLANLABS-2014S1002030

PATIENT
  Age: 55 Year
  Sex: Female
  Weight: 81.65 kg

DRUGS (3)
  1. PAROXETINE HYDROCHLORIDE EXTENDED-RELEASE TABLETS [Suspect]
     Indication: DEPRESSION
     Route: 048
     Dates: start: 201309, end: 2013
  2. ESTROGEN SUPPLEMENT [Concomitant]
     Dates: start: 201305
  3. THYROID [Concomitant]

REACTIONS (2)
  - Drug ineffective [Recovered/Resolved]
  - Anxiety [Recovered/Resolved]
